FAERS Safety Report 24988255 (Version 1)
Quarter: 2025Q1

REPORT INFORMATION
  Report Type: Spontaneous
  Country: FR (occurrence: None)
  Receive Date: 20250220
  Receipt Date: 20250220
  Transmission Date: 20250409
  Serious: Yes (Death, Life-Threatening, Hospitalization, Other)
  Sender: ORION
  Company Number: None

PATIENT
  Age: 76 Year
  Sex: Male
  Weight: 84.5 kg

DRUGS (17)
  1. METHOTREXATE [Suspect]
     Active Substance: METHOTREXATE
     Indication: Rheumatoid arthritis
     Dates: end: 20240108
  2. ETANERCEPT [Concomitant]
     Active Substance: ETANERCEPT
     Dates: start: 2022
  3. PREDNISONE [Concomitant]
     Active Substance: PREDNISONE
  4. FUROSEMIDE [Concomitant]
     Active Substance: FUROSEMIDE
  5. ELIQUIS [Concomitant]
     Active Substance: APIXABAN
  6. AMIODARONE [Concomitant]
     Active Substance: AMIODARONE
  7. EUPANTOL [Concomitant]
     Active Substance: PANTOPRAZOLE SODIUM
  8. BISOPROLOL FUMARATE [Concomitant]
     Active Substance: BISOPROLOL FUMARATE
  9. BRICANYL [Concomitant]
     Active Substance: TERBUTALINE SULFATE
  10. SPIRIVA [Concomitant]
     Active Substance: TIOTROPIUM BROMIDE MONOHYDRATE
  11. BECLOMETHASONE DIPROPIONATE [Concomitant]
     Active Substance: BECLOMETHASONE DIPROPIONATE
  12. SPIRONOLACTONE [Concomitant]
     Active Substance: SPIRONOLACTONE
  13. ATROVENT [Concomitant]
     Active Substance: IPRATROPIUM BROMIDE
  14. ALBUTEROL [Concomitant]
     Active Substance: ALBUTEROL
  15. INSULIN ASPART [Concomitant]
     Active Substance: INSULIN ASPART
  16. SIMVASTATIN [Concomitant]
     Active Substance: SIMVASTATIN
  17. UMULINE [Concomitant]
     Active Substance: INSULIN HUMAN

REACTIONS (14)
  - Septic shock [Fatal]
  - Multiple organ dysfunction syndrome [Fatal]
  - Pancytopenia [Not Recovered/Not Resolved]
  - Acute kidney injury [Not Recovered/Not Resolved]
  - Toxicity to various agents [Unknown]
  - Acute coronary syndrome [Unknown]
  - Pulmonary embolism [Unknown]
  - Enterococcus test positive [Unknown]
  - Cardio-respiratory arrest [Unknown]
  - Herpes simplex [Unknown]
  - Hyperbilirubinaemia [Not Recovered/Not Resolved]
  - Dysphagia [Unknown]
  - Oral disorder [Unknown]
  - Pruritus [Unknown]

NARRATIVE: CASE EVENT DATE: 20240101
